FAERS Safety Report 5474103-7 (Version None)
Quarter: 2007Q4

REPORT INFORMATION
  Report Type: 
  Country: None (occurrence: None)
  Receive Date: 20071002
  Receipt Date: 20070927
  Transmission Date: 20080405
  Serious: Yes (Life-Threatening, Hospitalization)
  Sender: FDA-Public Use
  Company Number: US-RB-008158-07

PATIENT
  Sex: Female
  Weight: 41.49 kg

DRUGS (2)
  1. SUBOXONE [Suspect]
     Route: 060
     Dates: start: 20060628, end: 20070809
  2. SUBOXONE [Suspect]
     Indication: PAIN
     Route: 060
     Dates: start: 20070810

REACTIONS (3)
  - DRUG EXPOSURE DURING PREGNANCY [None]
  - ECTOPIC PREGNANCY [None]
  - ROAD TRAFFIC ACCIDENT [None]
